FAERS Safety Report 9670414 (Version 5)
Quarter: 2014Q1

REPORT INFORMATION
  Report Type: Spontaneous
  Country: DE (occurrence: DE)
  Receive Date: 20131105
  Receipt Date: 20140221
  Transmission Date: 20141002
  Serious: Yes (Death, Hospitalization)
  Sender: FDA-Public Use
  Company Number: DE-AMGEN-DEUSP2013077334

PATIENT
  Age: 84 Year
  Sex: Male

DRUGS (4)
  1. XGEVA [Suspect]
     Indication: METASTASES TO BONE
     Dosage: 120 MG, UNK
     Route: 058
     Dates: start: 20131024
  2. FENTANYL [Suspect]
     Indication: BONE PAIN
     Dosage: 125 MUG, UNK
     Route: 065
     Dates: start: 20131001, end: 20131028
  3. CALCIUM [Concomitant]
  4. VITAMIN D                          /00107901/ [Concomitant]

REACTIONS (3)
  - Malignant neoplasm progression [Fatal]
  - Somnolence [Recovered/Resolved]
  - Toxicity to various agents [Recovered/Resolved]
